FAERS Safety Report 17983662 (Version 2)
Quarter: 2020Q3

REPORT INFORMATION
  Report Type: Report from Study
  Country: None (occurrence: US)
  Receive Date: 20200706
  Receipt Date: 20200908
  Transmission Date: 20201103
  Serious: Yes (Hospitalization, Other)
  Sender: FDA-Public Use
  Company Number: US-ABBVIE-20K-163-3468169-00

PATIENT
  Sex: Female
  Weight: 91.71 kg

DRUGS (2)
  1. HUMIRA [Suspect]
     Active Substance: ADALIMUMAB
     Indication: RHEUMATOID ARTHRITIS
     Dosage: CITRATE FREE
     Route: 058
     Dates: start: 20200528, end: 20200528
  2. HUMIRA [Suspect]
     Active Substance: ADALIMUMAB
     Dosage: CITRATE FREE
     Route: 058
     Dates: start: 20200611

REACTIONS (5)
  - Arthritis bacterial [Unknown]
  - Thrombosis [Unknown]
  - Hospitalisation [Recovering/Resolving]
  - Post procedural complication [Unknown]
  - Localised infection [Unknown]

NARRATIVE: CASE EVENT DATE: 2020
